FAERS Safety Report 23460327 (Version 1)
Quarter: 2024Q1

REPORT INFORMATION
  Report Type: Report from Study
  Country: IT (occurrence: IT)
  Receive Date: 20240131
  Receipt Date: 20240131
  Transmission Date: 20240409
  Serious: Yes (Other)
  Sender: FDA-Public Use
  Company Number: IT-SUN PHARMACEUTICAL INDUSTRIES LTD-2024RR-428643

PATIENT
  Age: 88 Year
  Sex: Male
  Weight: 68 kg

DRUGS (2)
  1. RIVAROXABAN [Interacting]
     Active Substance: RIVAROXABAN
     Indication: Ischaemic stroke
     Dosage: UNK
     Route: 065
  2. PHENOBARBITAL [Interacting]
     Active Substance: PHENOBARBITAL
     Indication: Ischaemic stroke
     Dosage: UNK
     Route: 065

REACTIONS (3)
  - Partial seizures [Unknown]
  - Drug ineffective [Unknown]
  - Drug interaction [Unknown]
